FAERS Safety Report 23387600 (Version 1)
Quarter: 2024Q1

REPORT INFORMATION
  Report Type: Report from Study
  Country: TW (occurrence: None)
  Receive Date: 20240110
  Receipt Date: 20240110
  Transmission Date: 20240410
  Serious: Yes (Other)
  Sender: FDA-Public Use
  Company Number: 2024A003023

PATIENT

DRUGS (1)
  1. TAGRISSO [Suspect]
     Active Substance: OSIMERTINIB
     Indication: Lung neoplasm malignant
     Route: 048
     Dates: start: 20190823

REACTIONS (5)
  - Basilar artery occlusion [Unknown]
  - Basilar artery stenosis [Unknown]
  - Cerebral infarction [Unknown]
  - Chronic lymphocytic leukaemia [Unknown]
  - Plasma cell myeloma [Unknown]
